FAERS Safety Report 10743275 (Version 2)
Quarter: 2015Q1

REPORT INFORMATION
  Report Type: Report from Study
  Country: US (occurrence: US)
  Receive Date: 20150127
  Receipt Date: 20150130
  Transmission Date: 20150721
  Serious: Yes (Death)
  Sender: FDA-Public Use
  Company Number: US-EXELIXIS-CABO-14005129

PATIENT
  Age: 7 Year
  Sex: Male

DRUGS (4)
  1. CABOZANTINIB [Suspect]
     Active Substance: CABOZANTINIB
     Dosage: 40 MG, QD; ALTERNATING WITH 20 MG, PO QD
     Route: 048
     Dates: start: 20141107
  2. TORISEL [Concomitant]
     Active Substance: TEMSIROLIMUS
  3. AVASTIN [Concomitant]
     Active Substance: BEVACIZUMAB
  4. CABOZANTINIB [Suspect]
     Active Substance: CABOZANTINIB
     Indication: BRAIN NEOPLASM MALIGNANT
     Dosage: 20 MG, QD
     Route: 048
     Dates: start: 20141004

REACTIONS (3)
  - Drug ineffective for unapproved indication [Unknown]
  - Off label use [Unknown]
  - Bacterial infection [Fatal]

NARRATIVE: CASE EVENT DATE: 20150125
